FAERS Safety Report 21659982 (Version 1)
Quarter: 2022Q4

REPORT INFORMATION
  Report Type: Spontaneous
  Country: US (occurrence: US)
  Receive Date: 20221130
  Receipt Date: 20221130
  Transmission Date: 20230113
  Serious: Yes (Hospitalization, Other)
  Sender: FDA-Public Use
  Company Number: US-SUN PHARMACEUTICAL INDUSTRIES LTD-2022R1-366441

PATIENT
  Age: 65 Year
  Sex: Male

DRUGS (1)
  1. GLIPIZIDE [Suspect]
     Active Substance: GLIPIZIDE
     Indication: Type 2 diabetes mellitus
     Dosage: UNK (5 MG BEFORE THE PRESENTATION)
     Route: 065

REACTIONS (3)
  - Palpitations [Recovering/Resolving]
  - Dizziness [Recovering/Resolving]
  - Ventricular tachycardia [Recovering/Resolving]
